FAERS Safety Report 13025984 (Version 1)
Quarter: 2016Q4

REPORT INFORMATION
  Report Type: Spontaneous
  Country: US (occurrence: US)
  Receive Date: 20161213
  Receipt Date: 20161213
  Transmission Date: 20170207
  Serious: No
  Sender: FDA-Public Use
  Company Number: None

PATIENT
  Age: 8 Year
  Sex: Female
  Weight: 63 kg

DRUGS (3)
  1. CLEARLAX [Suspect]
     Active Substance: POLYETHYLENE GLYCOL 3350
     Indication: ENCOPRESIS
     Dosage: ?          QUANTITY:2 CUPFUL;?
     Route: 048
  2. YOUNG LIVING ESSENTIALZYMES [Concomitant]
  3. ZOLOFT [Concomitant]
     Active Substance: SERTRALINE HYDROCHLORIDE

REACTIONS (6)
  - Anxiety [None]
  - Hunger [None]
  - Lethargy [None]
  - Mood swings [None]
  - Sensory disturbance [None]
  - Irritability [None]

NARRATIVE: CASE EVENT DATE: 20150915
